FAERS Safety Report 9205887 (Version 2)
Quarter: 2013Q4

REPORT INFORMATION
  Report Type: Spontaneous
  Country: GB (occurrence: GB)
  Receive Date: 20130403
  Receipt Date: 20131106
  Transmission Date: 20140711
  Serious: Yes (Life-Threatening)
  Sender: FDA-Public Use
  Company Number: GB-JNJFOC-20130315512

PATIENT
  Age: 60 Year
  Sex: Male
  Weight: 82.99 kg

DRUGS (5)
  1. TRAMADOL HYDROCHLORIDE [Suspect]
     Indication: OSTEOARTHRITIS
     Dosage: 100-150MG ONCE DAILY
     Route: 048
     Dates: start: 20121022, end: 20121028
  2. TRAMADOL HYDROCHLORIDE [Suspect]
     Indication: OSTEOARTHRITIS
     Dosage: 100-150MG PER DAY
     Route: 048
     Dates: start: 20120910, end: 20120916
  3. PARACETAMOL [Concomitant]
     Indication: PRODUCT USED FOR UNKNOWN INDICATION
     Route: 065
  4. ETORICOXIB [Concomitant]
     Indication: PRODUCT USED FOR UNKNOWN INDICATION
     Route: 065
  5. CODEINE PHOSPHATE [Concomitant]
     Indication: PRODUCT USED FOR UNKNOWN INDICATION
     Route: 065

REACTIONS (9)
  - Peripheral circulatory failure [Recovered/Resolved]
  - Withdrawal syndrome [Recovered/Resolved]
  - Somnolence [Recovered/Resolved]
  - Fear [Recovered/Resolved]
  - Restless legs syndrome [Recovered/Resolved]
  - Libido increased [Recovered/Resolved]
  - Peripheral coldness [Recovered/Resolved]
  - Nausea [Recovered/Resolved]
  - Somnolence [Recovered/Resolved]
